FAERS Safety Report 7321855-7 (Version None)
Quarter: 2011Q1

REPORT INFORMATION
  Report Type: 
  Country: None (occurrence: None)
  Receive Date: 20110228
  Receipt Date: 20110215
  Transmission Date: 20110831
  Serious: Yes (Disabling)
  Sender: FDA-Public Use
  Company Number: PHHY2011PT12952

PATIENT
  Sex: Female

DRUGS (6)
  1. TACROLIMUS [Suspect]
     Indication: LIVER TRANSPLANT
     Dosage: 2 MG, UNK
     Route: 048
     Dates: start: 20100901, end: 20101101
  2. ASPIRIN [Concomitant]
     Indication: PROPHYLAXIS
     Dosage: 100 MG, UNK
     Route: 048
     Dates: start: 20030317
  3. TACROLIMUS SANDOZ [Suspect]
     Indication: LIVER TRANSPLANT
     Dosage: 1.5 MG, BID
     Route: 048
     Dates: start: 20100901, end: 20101101
  4. ALPRAZOLAM [Concomitant]
     Indication: LIVER TRANSPLANT
     Dosage: UNK
     Dates: start: 20030317
  5. MYCOPHENOLATE MOFETIL [Concomitant]
     Indication: LIVER TRANSPLANT
     Dosage: 1000 MG, UNK
     Route: 048
     Dates: start: 20030317
  6. LAMIVUDINE [Concomitant]
     Indication: HEPATITIS B
     Dosage: 100 MG, UNK
     Route: 048
     Dates: start: 20060317

REACTIONS (8)
  - CONFUSIONAL STATE [None]
  - HEADACHE [None]
  - PHOTOPHOBIA [None]
  - DISTURBANCE IN ATTENTION [None]
  - FATIGUE [None]
  - MEMORY IMPAIRMENT [None]
  - INSOMNIA [None]
  - VISION BLURRED [None]
